FAERS Safety Report 15852644 (Version 7)
Quarter: 2019Q4

REPORT INFORMATION
  Report Type: Report from Study
  Country: None (occurrence: JP)
  Receive Date: 20190122
  Receipt Date: 20191125
  Transmission Date: 20200122
  Serious: Yes (Hospitalization)
  Sender: FDA-Public Use
  Company Number: JP-ABBVIE-19S-087-2633497-00

PATIENT
  Age: 60 Year
  Sex: Male
  Weight: 61 kg

DRUGS (17)
  1. DUODOPA [Suspect]
     Active Substance: CARBIDOPA\LEVODOPA
     Dosage: MD: 9.0 ML CD: 1.3 ML/HR ? 14 HRS
     Route: 050
     Dates: start: 20180425, end: 20190227
  2. DUODOPA [Suspect]
     Active Substance: CARBIDOPA\LEVODOPA
     Dosage: MD: 9.0 ML, CD: 1.3 ML/HR ? 13 HRS
     Route: 050
     Dates: start: 20170413, end: 20170415
  3. DUODOPA [Suspect]
     Active Substance: CARBIDOPA\LEVODOPA
     Dosage: MD: 10.2 ML, CD: 1.9 ML/HR ? 15 HRS, ED: 1.6 ML/UNIT ? 2 TIMES
     Route: 050
     Dates: start: 20190227
  4. DUODOPA [Suspect]
     Active Substance: CARBIDOPA\LEVODOPA
     Dosage: MD: 9.2 ML CD: 1.4 ML/HR ? 15 HRS ED: 1.2 ML/UNIT ? 2 TIMES
     Route: 050
     Dates: start: 20170421, end: 20171018
  5. ENTACAPONE. [Concomitant]
     Active Substance: ENTACAPONE
     Indication: PARKINSON^S DISEASE
     Route: 048
     Dates: start: 20170416, end: 20170419
  6. ROPINIROLE HYDROCHLORIDE. [Concomitant]
     Active Substance: ROPINIROLE HYDROCHLORIDE
     Route: 048
     Dates: start: 20170416, end: 20170419
  7. TAMSULOSIN HYDROCHLORIDE. [Concomitant]
     Active Substance: TAMSULOSIN HYDROCHLORIDE
     Indication: PRODUCT USED FOR UNKNOWN INDICATION
     Route: 048
  8. CARBIDOPA HYDRATE AND LEVODOPA [Concomitant]
     Indication: PARKINSON^S DISEASE
     Route: 048
  9. SELEGILINE HYDROCHLORIDE. [Concomitant]
     Active Substance: SELEGILINE HYDROCHLORIDE
     Indication: PARKINSON^S DISEASE
     Route: 048
     Dates: start: 20170416, end: 20170419
  10. ROPINIROLE HYDROCHLORIDE. [Concomitant]
     Active Substance: ROPINIROLE HYDROCHLORIDE
     Indication: PRODUCT USED FOR UNKNOWN INDICATION
     Route: 048
     Dates: start: 20180530
  11. ROPINIROLE HYDROCHLORIDE. [Concomitant]
     Active Substance: ROPINIROLE HYDROCHLORIDE
     Route: 048
     Dates: start: 20180530
  12. AMANTADINE HYDROCHLORIDE. [Concomitant]
     Active Substance: AMANTADINE HYDROCHLORIDE
     Indication: PARKINSON^S DISEASE
     Route: 048
     Dates: end: 20170414
  13. EVIPROSTAT [Concomitant]
     Active Substance: CHIMAPHILA UMBELLATA\MANGANESE CHLORIDE\POPULUS TREMULOIDES\SODIUM TAUROCHOLATE
     Indication: PRODUCT USED FOR UNKNOWN INDICATION
     Route: 048
  14. DUODOPA [Suspect]
     Active Substance: CARBIDOPA\LEVODOPA
     Indication: PARKINSON^S DISEASE
     Route: 050
  15. ROPINIROLE HYDROCHLORIDE. [Concomitant]
     Active Substance: ROPINIROLE HYDROCHLORIDE
     Indication: PARKINSON^S DISEASE
  16. CARBIDOPA HYDRATE AND LEVODOPA [Concomitant]
     Route: 048
     Dates: start: 20170416, end: 20170419
  17. DUODOPA [Suspect]
     Active Substance: CARBIDOPA\LEVODOPA
     Dosage: MD: 10.2 ML?CD: 1.9 ML/HR ? 15 HRS?ED: 1.6 ML/UNIT ? 2 TIMES
     Route: 050
     Dates: start: 20171018, end: 20180425

REACTIONS (5)
  - Device issue [Recovered/Resolved]
  - Gastrointestinal disorder [Recovering/Resolving]
  - C-reactive protein increased [Recovering/Resolving]
  - Gastrointestinal disorder [Recovering/Resolving]
  - Insomnia [Unknown]

NARRATIVE: CASE EVENT DATE: 20180827
